FAERS Safety Report 17712700 (Version 1)
Quarter: 2020Q2

REPORT INFORMATION
  Report Type: Spontaneous
  Country: US (occurrence: US)
  Receive Date: 20200427
  Receipt Date: 20200427
  Transmission Date: 20200714
  Serious: No
  Sender: FDA-Public Use
  Company Number: US-ABBVIE-20K-163-3349692-00

PATIENT
  Age: 29 Year
  Sex: Female

DRUGS (1)
  1. MAVYRET [Suspect]
     Active Substance: GLECAPREVIR\PIBRENTASVIR
     Indication: CHRONIC HEPATITIS C
     Dosage: 3 TABLETS
     Route: 048
     Dates: start: 20200203, end: 20200301

REACTIONS (2)
  - Alcohol intolerance [Unknown]
  - Hepatitis C [Unknown]

NARRATIVE: CASE EVENT DATE: 202003
